FAERS Safety Report 4457754-8 (Version None)
Quarter: 2004Q3

REPORT INFORMATION
  Report Type: 
  Country: None (occurrence: None)
  Receive Date: 20040922
  Receipt Date: 20040916
  Transmission Date: 20050211
  Serious: Yes (Life-Threatening, Hospitalization, Other)
  Sender: FDA-Public Use
  Company Number: MEDI-0002207

PATIENT
  Age: 53 Year
  Sex: Male
  Weight: 51 kg

DRUGS (6)
  1. ETHYOL [Suspect]
     Indication: RADIOTHERAPY
     Dosage: SEE IMAGE
     Route: 042
     Dates: start: 20040614, end: 20040618
  2. ETHYOL [Suspect]
     Indication: RADIOTHERAPY
     Dosage: SEE IMAGE
     Route: 042
     Dates: start: 20040705, end: 20040709
  3. CARBOPLATIN [Concomitant]
  4. FLUOROURACIL [Concomitant]
  5. TRIFLUCAN (FLUCANAZOLE) [Concomitant]
  6. LEXOMIL (BROMAZEPAM) [Concomitant]

REACTIONS (12)
  - ALCOHOL WITHDRAWAL SYNDROME [None]
  - BRADYPNOEA [None]
  - DYSPNOEA [None]
  - HAEMORRHAGE [None]
  - HYPOXIA [None]
  - LARYNGEAL OEDEMA [None]
  - LOCALISED INFECTION [None]
  - LOSS OF CONSCIOUSNESS [None]
  - OBSTRUCTIVE AIRWAYS DISORDER [None]
  - PYREXIA [None]
  - RADIATION MUCOSITIS [None]
  - SCAR [None]
